FAERS Safety Report 9568159 (Version 1)
Quarter: 2013Q3

REPORT INFORMATION
  Report Type: Spontaneous
  Country: US (occurrence: US)
  Receive Date: 20130930
  Receipt Date: 20130930
  Transmission Date: 20140515
  Serious: No
  Sender: FDA-Public Use
  Company Number: US-AMGEN-USASP2013056625

PATIENT
  Age: 47 Year
  Sex: Male
  Weight: 140.59 kg

DRUGS (8)
  1. ENBREL [Suspect]
     Indication: PRODUCT USED FOR UNKNOWN INDICATION
     Dosage: 50 MG, QWK
     Route: 058
  2. LEFLUNOMIDE [Concomitant]
     Dosage: 10 MG, UNK
  3. PREDNISONE [Concomitant]
     Dosage: 2.5 MG, UNK
  4. IBUPROFEN [Concomitant]
     Dosage: 200 MG, UNK
  5. B COMPLEX                          /06817001/ [Concomitant]
     Dosage: UNK
  6. VITAMIN B6 [Concomitant]
     Dosage: 250 MG, UNK
  7. GABAPENTIN [Concomitant]
     Dosage: 100 MG, UNK
  8. VITAMIN B12                        /00056201/ [Concomitant]
     Dosage: 1000 CR

REACTIONS (1)
  - Drug ineffective [Unknown]
